FAERS Safety Report 22882442 (Version 2)
Quarter: 2023Q4

REPORT INFORMATION
  Report Type: Spontaneous
  Country: FR (occurrence: FR)
  Receive Date: 20230830
  Receipt Date: 20231104
  Transmission Date: 20240109
  Serious: Yes (Hospitalization, Other)
  Sender: FDA-Public Use
  Company Number: FR-BAXTER-2023BAX028445

PATIENT
  Age: 73 Year
  Sex: Female
  Weight: 71 kg

DRUGS (11)
  1. PREDNISONE [Suspect]
     Active Substance: PREDNISONE
     Indication: Diffuse large B-cell lymphoma
     Dosage: 100 MG, EVERY 1 DAYS
     Route: 048
     Dates: start: 20230727
  2. DOXORUBICIN [Suspect]
     Active Substance: DOXORUBICIN
     Indication: Diffuse large B-cell lymphoma
     Dosage: 88.4 MG, EVERY 3 WEEKS`
     Route: 042
     Dates: start: 20230727
  3. RITUXIMAB [Suspect]
     Active Substance: RITUXIMAB
     Indication: Diffuse large B-cell lymphoma
     Dosage: 660 MG, EVERY 3 WEEKS
     Route: 042
     Dates: start: 20230727
  4. CYCLOPHOSPHAMIDE [Suspect]
     Active Substance: CYCLOPHOSPHAMIDE
     Indication: Diffuse large B-cell lymphoma
     Dosage: 1315 MG, EVERY 3 WEEKS
     Route: 042
     Dates: start: 20230727
  5. VINCRISTINE [Suspect]
     Active Substance: VINCRISTINE
     Indication: Diffuse large B-cell lymphoma
     Dosage: 2 MG, EVERY 3 WEEKS
     Route: 042
     Dates: start: 20230727
  6. EPCORITAMAB [Suspect]
     Active Substance: EPCORITAMAB
     Indication: Diffuse large B-cell lymphoma
     Dosage: 0.16 MILLIGRAM, C1D1, TOTAL
     Route: 058
     Dates: start: 20230727
  7. EPCORITAMAB [Suspect]
     Active Substance: EPCORITAMAB
     Dosage: 0.16 MG PRIMING DOSE, C1, D1, TOTAL
     Route: 058
     Dates: start: 20230727, end: 20230727
  8. EPCORITAMAB [Suspect]
     Active Substance: EPCORITAMAB
     Dosage: 0.8 MG INTERMEDIATE DOSE, C1, D8, TOTAL
     Route: 058
     Dates: start: 20230804, end: 20230804
  9. EPCORITAMAB [Suspect]
     Active Substance: EPCORITAMAB
     Dosage: 48 MG FULL DOSE, EVERY 1 WEEKS
     Route: 058
     Dates: start: 20230811
  10. PANTOPRAZOLE [Concomitant]
     Active Substance: PANTOPRAZOLE
     Indication: Gastrointestinal disorder prophylaxis
     Dosage: UNK 40 MG, 2/DAYS,
     Route: 065
     Dates: start: 2023
  11. POLYETHYLENE GLYCOLS [Concomitant]
     Active Substance: POLYETHYLENE GLYCOLS
     Indication: Constipation prophylaxis
     Dosage: 2 BAG, 2/DAYS
     Route: 065
     Dates: start: 2023

REACTIONS (1)
  - Gastric perforation [Not Recovered/Not Resolved]

NARRATIVE: CASE EVENT DATE: 20230801
